FAERS Safety Report 7864828-8 (Version None)
Quarter: 2011Q4

REPORT INFORMATION
  Report Type: 
  Country: None (occurrence: None)
  Receive Date: 20111028
  Receipt Date: 20101029
  Transmission Date: 20120403
  Serious: No
  Sender: FDA-Public Use
  Company Number: US-GLAXOSMITHKLINE-A0877469A

PATIENT
  Age: 68 Year
  Sex: Female

DRUGS (6)
  1. DILTIAZEM [Concomitant]
  2. PROAIR HFA [Concomitant]
  3. DILTIAZEM [Concomitant]
  4. ADVAIR DISKUS 100/50 [Suspect]
     Indication: CHRONIC OBSTRUCTIVE PULMONARY DISEASE
     Dosage: 1PUFF TWICE PER DAY
     Route: 055
     Dates: start: 20080101
  5. LISINOPRIL AND HYDROCHLOROTHIAZIDE [Concomitant]
  6. LISINOPRIL [Concomitant]

REACTIONS (6)
  - DYSPHONIA [None]
  - DYSPNOEA [None]
  - UPPER RESPIRATORY TRACT CONGESTION [None]
  - PRODUCT QUALITY ISSUE [None]
  - FEELING ABNORMAL [None]
  - COUGH [None]
